FAERS Safety Report 23703372 (Version 8)
Quarter: 2024Q4

REPORT INFORMATION
  Report Type: Report from Study
  Country: US (occurrence: US)
  Receive Date: 20240403
  Receipt Date: 20241024
  Transmission Date: 20250114
  Serious: Yes (Other)
  Sender: NOVARTIS
  Company Number: US-002147023-NVSC2024US046884

PATIENT
  Age: 58 Year
  Sex: Female

DRUGS (2)
  1. KESIMPTA [Suspect]
     Active Substance: OFATUMUMAB
     Indication: Product used for unknown indication
     Dosage: UNK, QW
     Route: 065
     Dates: start: 20240222
  2. KESIMPTA [Suspect]
     Active Substance: OFATUMUMAB
     Dosage: UNK, QMO
     Route: 065

REACTIONS (34)
  - Suicidal ideation [Unknown]
  - Pancreatic failure [Unknown]
  - Gastric hypomotility [Unknown]
  - Pollakiuria [Not Recovered/Not Resolved]
  - Thirst [Not Recovered/Not Resolved]
  - Depression [Unknown]
  - Clumsiness [Unknown]
  - Fatigue [Unknown]
  - Weight decreased [Unknown]
  - Sleep disorder [Unknown]
  - Mobility decreased [Unknown]
  - Illness [Unknown]
  - Labyrinthitis [Unknown]
  - Pruritus [Unknown]
  - Anger [Unknown]
  - Joint injury [Unknown]
  - Therapeutic response shortened [Recovering/Resolving]
  - Pain in extremity [Unknown]
  - Memory impairment [Unknown]
  - Temperature intolerance [Unknown]
  - Pain [Unknown]
  - Aphthous ulcer [Unknown]
  - Feeling abnormal [Unknown]
  - Sneezing [Unknown]
  - Nasopharyngitis [Unknown]
  - Chills [Unknown]
  - Rhinorrhoea [Unknown]
  - Ear congestion [Unknown]
  - Ear pain [Unknown]
  - Scleral discolouration [Unknown]
  - Depressed mood [Unknown]
  - Gait disturbance [Unknown]
  - Affective disorder [Unknown]
  - Ligament injury [Unknown]

NARRATIVE: CASE EVENT DATE: 20240304
